FAERS Safety Report 19036935 (Version 1)
Quarter: 2021Q1

REPORT INFORMATION
  Report Type: Spontaneous
  Country: US (occurrence: US)
  Receive Date: 20210322
  Receipt Date: 20210322
  Transmission Date: 20210420
  Serious: Yes (Hospitalization)
  Sender: FDA-Public Use
  Company Number: None

PATIENT
  Age: 59 Year
  Sex: Male

DRUGS (3)
  1. APIXABAN (APIXABAN5MG TAB) [Suspect]
     Active Substance: APIXABAN
     Indication: INFERIOR VENA CAVA SYNDROME
     Dates: start: 20210210
  2. APIXABAN (APIXABAN5MG TAB) [Suspect]
     Active Substance: APIXABAN
     Indication: THROMBOLYSIS
     Dates: start: 20210210
  3. APIXABAN (APIXABAN5MG TAB) [Suspect]
     Active Substance: APIXABAN
     Indication: VENOUS RECANALISATION
     Dates: start: 20210210

REACTIONS (6)
  - Anaemia [None]
  - Melaena [None]
  - Duodenal ulcer [None]
  - Nodule [None]
  - Gastric haemorrhage [None]
  - Lipoma [None]

NARRATIVE: CASE EVENT DATE: 20210222
